FAERS Safety Report 5665123-8 (Version None)
Quarter: 2008Q1

REPORT INFORMATION
  Report Type: 
  Country: None (occurrence: None)
  Receive Date: 20080314
  Receipt Date: 20080305
  Transmission Date: 20080703
  Serious: Yes (Other)
  Sender: FDA-Public Use
  Company Number: MY-PFIZER INC-2008021699

PATIENT
  Sex: Female

DRUGS (1)
  1. CADUET [Suspect]
     Dosage: TEXT:5MG/10MG
     Route: 048

REACTIONS (2)
  - ABASIA [None]
  - GOUT [None]
